FAERS Safety Report 12946053 (Version 2)
Quarter: 2016Q4

REPORT INFORMATION
  Report Type: Report from Study
  Country: None (occurrence: US)
  Receive Date: 20161116
  Receipt Date: 20161118
  Transmission Date: 20170207
  Serious: Yes (Other)
  Sender: FDA-Public Use
  Company Number: US-ABBVIE-16K-163-1778025-00

PATIENT
  Age: 75 Year
  Sex: Female

DRUGS (1)
  1. HUMIRA [Suspect]
     Active Substance: ADALIMUMAB
     Indication: RHEUMATOID ARTHRITIS
     Route: 058

REACTIONS (4)
  - Spinal fracture [Unknown]
  - Rheumatoid arthritis [Unknown]
  - Dementia [Not Recovered/Not Resolved]
  - Incontinence [Unknown]

NARRATIVE: CASE EVENT DATE: 201310
